FAERS Safety Report 9517048 (Version 4)
Quarter: 2013Q4

REPORT INFORMATION
  Report Type: Spontaneous
  Country: US (occurrence: US)
  Receive Date: 20130911
  Receipt Date: 20131204
  Transmission Date: 20140711
  Serious: No
  Sender: FDA-Public Use
  Company Number: US-PFIZER INC-2013261453

PATIENT
  Age: 73 Year
  Sex: Female

DRUGS (2)
  1. LYRICA [Suspect]
     Indication: DIABETIC NEUROPATHY
     Dosage: 50 MG, UNK
     Route: 048
  2. LYRICA [Suspect]
     Dosage: 100 MG, 3X/DAY (100 MG 2 IN AM 1 IN PM)
     Route: 048
     Dates: start: 2009

REACTIONS (2)
  - Nerve injury [Unknown]
  - Pain in extremity [Not Recovered/Not Resolved]
